FAERS Safety Report 16728887 (Version 2)
Quarter: 2019Q3

REPORT INFORMATION
  Report Type: Spontaneous
  Country: US (occurrence: US)
  Receive Date: 20190822
  Receipt Date: 20190822
  Transmission Date: 20191005
  Serious: No
  Sender: FDA-Public Use
  Company Number: US-MALLINCKRODT-T201802792

PATIENT
  Age: 55 Year
  Sex: Male
  Weight: 117 kg

DRUGS (2)
  1. OXYCODONE [Suspect]
     Active Substance: OXYCODONE
     Indication: PAIN
     Dosage: 15 MG (4 TABLETS)
     Route: 048
  2. OXYCODONE [Suspect]
     Active Substance: OXYCODONE
     Indication: PAIN
     Dosage: 30 MG (3 TABLETS)
     Route: 048

REACTIONS (12)
  - Nasopharyngitis [Unknown]
  - Product taste abnormal [Unknown]
  - Abdominal pain upper [Unknown]
  - Abdominal distension [Unknown]
  - Dysgeusia [Unknown]
  - Nausea [Unknown]
  - Malaise [Unknown]
  - Eating disorder [Unknown]
  - Headache [Unknown]
  - Product odour abnormal [Unknown]
  - Weight increased [Unknown]
  - Hyperhidrosis [Unknown]
